FAERS Safety Report 23078748 (Version 3)
Quarter: 2023Q4

REPORT INFORMATION
  Report Type: Report from Study
  Country: US (occurrence: US)
  Receive Date: 20231018
  Receipt Date: 20231103
  Transmission Date: 20240110
  Serious: No
  Sender: FDA-Public Use
  Company Number: US-SAREPTA THERAPEUTICS INC.-SRP2023-003079

PATIENT

DRUGS (7)
  1. DELANDISTROGENE MOXEPARVOVEC [Suspect]
     Active Substance: DELANDISTROGENE MOXEPARVOVEC
     Indication: Duchenne muscular dystrophy
     Dosage: 350 MILLILITER, SINGLE
     Route: 042
     Dates: start: 20230105, end: 20230105
  2. PREDNISONE [Concomitant]
     Active Substance: PREDNISONE
     Indication: Steroid therapy
     Dosage: 35 MILLIGRAM, QD
     Route: 048
     Dates: start: 20230104, end: 20230216
  3. PREDNISONE [Concomitant]
     Active Substance: PREDNISONE
     Indication: Duchenne muscular dystrophy
     Dosage: 20 MILLIGRAM, QD
     Route: 048
     Dates: start: 20210804
  4. PREDNISONE [Concomitant]
     Active Substance: PREDNISONE
     Dosage: 70 MILLIGRAM, QD
     Route: 048
     Dates: start: 20230217, end: 20230224
  5. PREDNISONE [Concomitant]
     Active Substance: PREDNISONE
     Dosage: 15 MILLIGRAM, QD
     Route: 048
     Dates: start: 20230225, end: 20230406
  6. PREDNISONE [Concomitant]
     Active Substance: PREDNISONE
     Dosage: 35 MILLIGRAM, QD
     Route: 048
     Dates: start: 20230407
  7. CIMETIDINE [Concomitant]
     Active Substance: CIMETIDINE
     Indication: Gastrooesophageal reflux disease
     Dosage: 200 MILLIGRAM, QD
     Route: 048
     Dates: start: 20230117

REACTIONS (1)
  - Glutamate dehydrogenase increased [Not Recovered/Not Resolved]

NARRATIVE: CASE EVENT DATE: 20230213
